APPROVED DRUG PRODUCT: MYCOPHENOLATE SODIUM
Active Ingredient: MYCOPHENOLATE SODIUM
Strength: EQ 360MG BASE
Dosage Form/Route: TABLET, DELAYED RELEASE;ORAL
Application: A202555 | Product #002 | TE Code: AB
Applicant: ACCORD HEALTHCARE INC
Approved: Aug 23, 2017 | RLD: No | RS: No | Type: RX